FAERS Safety Report 19181609 (Version 3)
Quarter: 2021Q2

REPORT INFORMATION
  Report Type: Other
  Country: US (occurrence: US)
  Receive Date: 20210426
  Receipt Date: 20210616
  Transmission Date: 20210717
  Serious: Yes (Other)
  Sender: FDA-Public Use
  Company Number: US-ROCHE-2812612

PATIENT
  Sex: Male
  Weight: 147.55 kg

DRUGS (14)
  1. METFORMIN [Concomitant]
     Active Substance: METFORMIN HYDROCHLORIDE
  2. ASPIRIN. [Concomitant]
     Active Substance: ASPIRIN
  3. CHLORTHIAZIDE [Concomitant]
     Active Substance: CHLOROTHIAZIDE
  4. AMLODIPINE [Concomitant]
     Active Substance: AMLODIPINE BESYLATE
  5. ALLOPURINOL. [Concomitant]
     Active Substance: ALLOPURINOL
  6. ATORVASTATIN [Concomitant]
     Active Substance: ATORVASTATIN
  7. VITAMIN D3 [Concomitant]
     Active Substance: CHOLECALCIFEROL
  8. MAGNESIUM [Concomitant]
     Active Substance: MAGNESIUM
  9. POTASSIUM [Concomitant]
     Active Substance: POTASSIUM
  10. OCREVUS [Suspect]
     Active Substance: OCRELIZUMAB
     Indication: RELAPSING-REMITTING MULTIPLE SCLEROSIS
     Dosage: DATE OF TREATMENT: 03/JUN/2020, 09/SEP/2020
     Route: 042
     Dates: start: 20200306
  11. LISINOPRIL. [Concomitant]
     Active Substance: LISINOPRIL
  12. METOPROLOL. [Concomitant]
     Active Substance: METOPROLOL
  13. BACLOFEN. [Concomitant]
     Active Substance: BACLOFEN
  14. ESCITALOPRAM [Concomitant]
     Active Substance: ESCITALOPRAM OXALATE

REACTIONS (15)
  - Hyperhidrosis [Recovered/Resolved]
  - Muscular weakness [Unknown]
  - COVID-19 pneumonia [Recovering/Resolving]
  - Lip swelling [Recovered/Resolved]
  - Depression [Unknown]
  - Monoparesis [Unknown]
  - Abdominal pain upper [Unknown]
  - Peroneal nerve palsy [Unknown]
  - Paraesthesia [Unknown]
  - Hypoacusis [Unknown]
  - Pruritus [Unknown]
  - Cognitive disorder [Unknown]
  - Restless legs syndrome [Unknown]
  - Pollakiuria [Unknown]
  - Dyspnoea [Recovered/Resolved]
